FAERS Safety Report 7640741-6 (Version None)
Quarter: 2011Q3

REPORT INFORMATION
  Report Type: 
  Country: None (occurrence: None)
  Receive Date: 20110728
  Receipt Date: 20110721
  Transmission Date: 20111222
  Serious: Yes (Hospitalization, Other)
  Sender: FDA-Public Use
  Company Number: US-US-EMD SERONO, INC.-7015017

PATIENT
  Sex: Male
  Weight: 91 kg

DRUGS (6)
  1. REBIF [Suspect]
     Route: 058
     Dates: start: 20101201
  2. MULTI-VITAMINS [Concomitant]
  3. SIMVASTATIN [Concomitant]
     Indication: BLOOD CHOLESTEROL INCREASED
  4. SIMVASTATIN [Concomitant]
     Dates: start: 20110301
  5. REBIF [Suspect]
     Indication: RELAPSING-REMITTING MULTIPLE SCLEROSIS
     Route: 058
     Dates: start: 20070626, end: 20100901
  6. VITAMIN B-12 [Concomitant]
     Indication: VITAMIN B12 DEFICIENCY

REACTIONS (6)
  - MULTIPLE SCLEROSIS RELAPSE [None]
  - MUSCULAR WEAKNESS [None]
  - ROTATOR CUFF SYNDROME [None]
  - WHITE BLOOD CELL COUNT INCREASED [None]
  - LYMPHOMA [None]
  - LYMPHOCYTE MORPHOLOGY ABNORMAL [None]
